FAERS Safety Report 23796493 (Version 7)
Quarter: 2024Q4

REPORT INFORMATION
  Report Type: Spontaneous
  Country: US (occurrence: US)
  Receive Date: 20240430
  Receipt Date: 20241011
  Transmission Date: 20250115
  Serious: Yes (Other)
  Sender: JOHNSON AND JOHNSON
  Company Number: US-JNJFOC-20240466081

PATIENT
  Age: 92 Year
  Sex: Male
  Weight: 63.56 kg

DRUGS (6)
  1. STELARA [Suspect]
     Active Substance: USTEKINUMAB
     Indication: Guttate psoriasis
     Route: 058
     Dates: start: 2011, end: 2022
  2. STELARA [Suspect]
     Active Substance: USTEKINUMAB
     Dosage: THE BATCH NUMBER AND EXPIRY DATE OF THE LAST DOSE OF STELARA GIVEN WAS 22F082MB AND DEC-2025
     Route: 058
     Dates: start: 202003, end: 202307
  3. AMBIEN [Concomitant]
     Active Substance: ZOLPIDEM TARTRATE
     Route: 048
  4. CLOBETASOL [Concomitant]
     Active Substance: CLOBETASOL
     Indication: Psoriasis
     Dates: start: 2013
  5. CALCIPOTRIENE [Concomitant]
     Active Substance: CALCIPOTRIENE
     Indication: Psoriasis
     Dates: start: 2015
  6. TRIAMCINOLONE [Concomitant]
     Active Substance: TRIAMCINOLONE
     Dates: start: 2016

REACTIONS (6)
  - Basal cell carcinoma [Recovered/Resolved]
  - Eye operation [Not Recovered/Not Resolved]
  - Visual impairment [Unknown]
  - Burning sensation [Unknown]
  - Tooth injury [Recovered/Resolved]
  - Off label use [Unknown]
